FAERS Safety Report 8836174 (Version 1)
Quarter: 2012Q4

REPORT INFORMATION
  Report Type: 
  Country: US (occurrence: US)
  Receive Date: 20121011
  Receipt Date: 20121011
  Transmission Date: 20130627
  Serious: No
  Sender: FDA-Public Use
  Company Number: US-BAYER-2012-103700

PATIENT
  Sex: Male

DRUGS (1)
  1. MIRENA [Suspect]
     Dosage: UNK
     Route: 003
     Dates: start: 201208

REACTIONS (2)
  - Rash [None]
  - Skin exfoliation [None]
